FAERS Safety Report 17058404 (Version 2)
Quarter: 2019Q4

REPORT INFORMATION
  Report Type: Report from Study
  Country: US (occurrence: US)
  Receive Date: 20191121
  Receipt Date: 20191129
  Transmission Date: 20200122
  Serious: No
  Sender: FDA-Public Use
  Company Number: US-IPSEN BIOPHARMACEUTICALS, INC.-2019-21624

PATIENT
  Age: 30 Year

DRUGS (1)
  1. DYSPORT [Suspect]
     Active Substance: ABOBOTULINUMTOXINA
     Indication: MUSCLE SPASTICITY
     Dosage: LOWER LIMB DISTAL MUSCLES - 100.00, LOWER PROXIMAL MUSCLE-100.00?TOTAL DOSE : 200 (UNITS NOT PROVIDE
     Route: 030

REACTIONS (1)
  - Muscle spasticity [Unknown]
